FAERS Safety Report 9236558 (Version 2)
Quarter: 2013Q3

REPORT INFORMATION
  Report Type: Report from Study
  Country: CA (occurrence: CA)
  Receive Date: 20130417
  Receipt Date: 20130710
  Transmission Date: 20140515
  Serious: Yes (Hospitalization, Other)
  Sender: FDA-Public Use
  Company Number: PHHY2013CA035678

PATIENT
  Sex: Female

DRUGS (10)
  1. CLOZARIL [Suspect]
     Indication: SCHIZOAFFECTIVE DISORDER
     Dosage: UNK
     Dates: start: 20011221
  2. CLOZARIL [Suspect]
     Dosage: 300 MG, UNK
     Route: 048
     Dates: start: 2002, end: 20130413
  3. RISPERDAL [Concomitant]
     Dosage: UNK
  4. LITHIUM [Concomitant]
     Dosage: UNK
  5. EPIVAL [Concomitant]
     Dosage: UNK
  6. ASAPHEN [Concomitant]
     Dosage: UNK
  7. NORVAS [Concomitant]
     Dosage: UNK
  8. BISOPROLOL [Concomitant]
     Dosage: UNK
  9. SYNTHROID [Concomitant]
     Dosage: UNK
  10. K-DUR [Concomitant]
     Dosage: UNK UKN, UNK

REACTIONS (4)
  - Vascular occlusion [Recovering/Resolving]
  - Faecaloma [Recovering/Resolving]
  - Delirium [Recovering/Resolving]
  - Urinary retention [Recovering/Resolving]
